FAERS Safety Report 9818246 (Version 3)
Quarter: 2014Q2

REPORT INFORMATION
  Report Type: Spontaneous
  Country: FR (occurrence: FR)
  Receive Date: 20140115
  Receipt Date: 20140414
  Transmission Date: 20141212
  Serious: Yes (Hospitalization, Other)
  Sender: FDA-Public Use
  Company Number: FR-TEVA-455035ISR

PATIENT
  Sex: Male

DRUGS (8)
  1. COPAXONE [Suspect]
     Dates: start: 20130507
  2. CYMBALTA [Concomitant]
     Indication: DEPRESSION
     Dosage: 2 TABLET DAILY; 1 TABLET IN THE MORNING AND 1 TABLET IN THE EVENING
     Dates: start: 20130830
  3. LYSANXIA [Concomitant]
     Indication: ANXIETY
     Dosage: 2 TABLET DAILY; 1 TABLET IN THE MORNING AND 1 TABLET IN THE EVENING
     Dates: start: 20130830
  4. ZOLPIDEM 10 MG [Concomitant]
     Dosage: 2 TABLET DAILY; IN THE EVENING
  5. DOLIPRANE [Concomitant]
     Indication: HEADACHE
  6. BACLOFENE [Concomitant]
     Dosage: 1 DOSAGE FORMS DAILY; IN THE EVENING
  7. IMOVANE [Concomitant]
     Indication: INSOMNIA
     Dosage: 1 IN THE EVENING
     Dates: start: 20130830
  8. MANTADIX [Concomitant]
     Dosage: 2 TABLET DAILY;

REACTIONS (8)
  - Loss of consciousness [Recovered/Resolved]
  - Paralysis [Recovered/Resolved]
  - Malaise [Recovered/Resolved]
  - Nystagmus [Unknown]
  - Erectile dysfunction [Unknown]
  - Fatigue [Unknown]
  - Anxiety [Unknown]
  - Immediate post-injection reaction [Recovered/Resolved]
